FAERS Safety Report 25778339 (Version 1)
Quarter: 2025Q3

REPORT INFORMATION
  Report Type: Spontaneous
  Country: US (occurrence: US)
  Receive Date: 20250909
  Receipt Date: 20250909
  Transmission Date: 20251021
  Serious: No
  Sender: NOVEN
  Company Number: US-NOVEN PHARMACEUTICALS, INC.-2025-NOV-US000894

PATIENT
  Sex: Female

DRUGS (4)
  1. COMBIPATCH [Suspect]
     Active Substance: ESTRADIOL\NORETHINDRONE ACETATE
     Indication: Menopausal symptoms
     Route: 062
     Dates: start: 2025
  2. ESTROGENS [Suspect]
     Active Substance: ESTROGENS
     Indication: Menopausal symptoms
     Route: 061
  3. PROGESTERONE [Concomitant]
     Active Substance: PROGESTERONE
     Indication: Vaginal haemorrhage
     Route: 067
  4. TESTOSTERONE [Concomitant]
     Active Substance: TESTOSTERONE
     Indication: Libido decreased
     Route: 062

REACTIONS (4)
  - Hypoaesthesia [Recovered/Resolved]
  - Arthralgia [Recovered/Resolved]
  - Product ineffective [Recovered/Resolved]
  - Postmenopausal haemorrhage [Recovered/Resolved]

NARRATIVE: CASE EVENT DATE: 20250101
